FAERS Safety Report 24722211 (Version 1)
Quarter: 2024Q4

REPORT INFORMATION
  Report Type: Spontaneous
  Country: US (occurrence: None)
  Receive Date: 20241210
  Receipt Date: 20241210
  Transmission Date: 20250114
  Serious: No
  Sender: Public
  Company Number: None

PATIENT
  Age: 53 Year
  Sex: Male

DRUGS (1)
  1. TOCILIZUMAB [Suspect]
     Active Substance: TOCILIZUMAB
     Indication: COVID-19
     Dosage: 640.00 MG : ONCE INTRAVENOUS?
     Route: 042
     Dates: start: 20210726, end: 20210726

REACTIONS (1)
  - Hypokalaemia [None]

NARRATIVE: CASE EVENT DATE: 20210729
